FAERS Safety Report 4877702-6 (Version None)
Quarter: 2006Q1

REPORT INFORMATION
  Report Type: 
  Country: None (occurrence: None)
  Receive Date: 20060109
  Receipt Date: 20051228
  Transmission Date: 20060701
  Serious: Yes (Other)
  Sender: FDA-Public Use
  Company Number: 2005173042

PATIENT
  Age: 40 Year
  Sex: Male
  Weight: 68.0396 kg

DRUGS (1)
  1. LISTERINE (MENTHOL, METHYL SALICYLATE, EUCALYPTOL, THYMOL) [Suspect]
     Dosage: 1/2 -1 BOTTLE DAILY, ORAL
     Route: 048
     Dates: start: 20050101

REACTIONS (5)
  - ALCOHOLISM [None]
  - DARK CIRCLES UNDER EYES [None]
  - INTENTIONAL DRUG MISUSE [None]
  - PALLOR [None]
  - WEIGHT DECREASED [None]
